FAERS Safety Report 8525421-7 (Version None)
Quarter: 2012Q3

REPORT INFORMATION
  Report Type: 
  Country: None (occurrence: None)
  Receive Date: 20120720
  Receipt Date: 20120718
  Transmission Date: 20120928
  Serious: Yes (Hospitalization)
  Sender: FDA-Public Use
  Company Number: PHFR2012GB004036

PATIENT
  Age: 63 Year
  Sex: Female
  Weight: 72.12 kg

DRUGS (3)
  1. DICLOFENAC [Suspect]
     Indication: ARTHRITIS
     Dosage: 25 MG, TID
     Route: 048
     Dates: start: 20090201, end: 20120101
  2. OMEPRAZOLE [Concomitant]
     Dosage: 20 MG, QD
  3. AMITRIPTYLINE HCL [Concomitant]

REACTIONS (2)
  - GASTRIC PH DECREASED [None]
  - ABDOMINAL PAIN UPPER [None]
